FAERS Safety Report 23634358 (Version 1)
Quarter: 2024Q1

REPORT INFORMATION
  Report Type: Spontaneous
  Country: ZA (occurrence: ZA)
  Receive Date: 20240314
  Receipt Date: 20240314
  Transmission Date: 20240410
  Serious: Yes (Other)
  Sender: FDA-Public Use
  Company Number: ZA-SA-SAC20240312000788

PATIENT
  Sex: Female

DRUGS (3)
  1. LEFLUNOMIDE [Suspect]
     Active Substance: LEFLUNOMIDE
     Dosage: 20 MG, QD
     Route: 065
     Dates: start: 202008
  2. CHLOROQUINE [Suspect]
     Active Substance: CHLOROQUINE
     Dosage: 20 MG, QD
     Dates: start: 202007
  3. SULFASALAZINE [Concomitant]
     Active Substance: SULFASALAZINE
     Dosage: 2000 MG, QD

REACTIONS (4)
  - Arthropathy [Unknown]
  - Tuberculosis [Unknown]
  - General physical health deterioration [Unknown]
  - Maternal exposure during pregnancy [Unknown]
